FAERS Safety Report 5387380-8 (Version None)
Quarter: 2007Q2

REPORT INFORMATION
  Report Type: 
  Country: None (occurrence: None)
  Receive Date: 20070617
  Receipt Date: 20070417
  Transmission Date: 20071010
  Serious: No
  Sender: FDA-Public Use
  Company Number: 2007PV032819

PATIENT
  Age: 47 Year
  Sex: Male
  Weight: 131.5431 kg

DRUGS (3)
  1. SYMLIN [Suspect]
     Indication: DIABETES MELLITUS NON-INSULIN-DEPENDENT
     Dosage: SEE IMAGE
     Route: 058
     Dates: start: 20070301
  2. INSULIN [Concomitant]
  3. FLOMAX [Concomitant]

REACTIONS (9)
  - ABDOMINAL PAIN UPPER [None]
  - BILIARY COLIC [None]
  - DIARRHOEA [None]
  - DYSPNOEA [None]
  - HEPATOMEGALY [None]
  - INJECTION SITE PAIN [None]
  - NAUSEA [None]
  - SPLENOMEGALY [None]
  - WEIGHT DECREASED [None]
